FAERS Safety Report 24096763 (Version 1)
Quarter: 2024Q3

REPORT INFORMATION
  Report Type: Report from Study
  Country: US (occurrence: None)
  Receive Date: 20240716
  Receipt Date: 20240716
  Transmission Date: 20241017
  Serious: Yes (Hospitalization)
  Sender: ASTRAZENECA
  Company Number: 2020SE91763

PATIENT
  Sex: Female

DRUGS (1)
  1. LYNPARZA [Suspect]
     Active Substance: OLAPARIB
     Indication: Ovarian cancer
     Dosage: 150MG, TWO TIMES A DAY AS PRESCRIBED AND SOMETIMES WITH FOOD, OTHER TIMES WITHOUT FOOD.
     Route: 048

REACTIONS (4)
  - Crohn^s disease [Unknown]
  - Blood potassium decreased [Unknown]
  - Laboratory test abnormal [Unknown]
  - Vitamin D decreased [Unknown]
